FAERS Safety Report 11540452 (Version 1)
Quarter: 2015Q3

REPORT INFORMATION
  Report Type: Spontaneous
  Country: US (occurrence: US)
  Receive Date: 20150923
  Receipt Date: 20150923
  Transmission Date: 20151125
  Serious: No
  Sender: FDA-Public Use
  Company Number: US-BEH-2014046790

PATIENT
  Sex: Female
  Weight: 81 kg

DRUGS (15)
  1. ALL OTHER THERAPEUTIC PRODUCTS [Concomitant]
     Active Substance: UNSPECIFIED INGREDIENT
  2. MULTIVITAMINS TABLET [Concomitant]
  3. GLUCOSAMINE MSM LIQUID [Concomitant]
  4. LISINOPRIL 10 MG TABLET [Concomitant]
  5. SODIUM CHLORIDE 0.9% [Concomitant]
     Active Substance: SODIUM CHLORIDE
  6. ASPIRIN ADULT 81 MG CHEW TAB [Concomitant]
  7. PRIVIGEN [Suspect]
     Active Substance: HUMAN IMMUNOGLOBULIN G
     Indication: MYASTHENIA GRAVIS
     Route: 042
  8. DIPHENHYDRAMINE. [Concomitant]
     Active Substance: DIPHENHYDRAMINE
  9. NORMAL SALINE [Concomitant]
     Active Substance: SODIUM CHLORIDE
  10. LEVOTHYROXINE 112 MCG TABLET [Concomitant]
  11. LIPITOR 20 MG TABLET [Concomitant]
  12. ACETAMINOPHEN. [Concomitant]
     Active Substance: ACETAMINOPHEN
  13. SOLU-MEDROL 40 MG/ML VIAL [Concomitant]
  14. MESTINON 60 MG TABLET [Concomitant]
  15. FISH OIL 1000 MG SOFTGEL [Concomitant]

REACTIONS (1)
  - Dyspnoea [Unknown]
